FAERS Safety Report 18315430 (Version 3)
Quarter: 2020Q4

REPORT INFORMATION
  Report Type: Spontaneous
  Country: US (occurrence: US)
  Receive Date: 20200926
  Receipt Date: 20201210
  Transmission Date: 20210113
  Serious: No
  Sender: FDA-Public Use
  Company Number: US-SA-2020SA259955

PATIENT

DRUGS (2)
  1. LANTUS [Suspect]
     Active Substance: INSULIN GLARGINE
     Indication: TYPE 2 DIABETES MELLITUS
     Dosage: 25 IU, QD
     Route: 065
  2. LANTUS [Suspect]
     Active Substance: INSULIN GLARGINE
     Dosage: 4 IU
     Route: 065

REACTIONS (4)
  - Arthralgia [Unknown]
  - Glycosylated haemoglobin increased [Unknown]
  - Gait disturbance [Unknown]
  - Product storage error [Unknown]

NARRATIVE: CASE EVENT DATE: 20201203
